FAERS Safety Report 16628427 (Version 4)
Quarter: 2020Q1

REPORT INFORMATION
  Report Type: Report from Study
  Country: US (occurrence: US)
  Receive Date: 20190724
  Receipt Date: 20200319
  Transmission Date: 20200409
  Serious: Yes (Other)
  Sender: FDA-Public Use
  Company Number: PHEH2019US030491

PATIENT
  Age: 13 Year
  Sex: Male

DRUGS (2)
  1. AFINITOR [Suspect]
     Active Substance: EVEROLIMUS
     Dosage: 5 MG, QD
     Route: 048
  2. AFINITOR [Suspect]
     Active Substance: EVEROLIMUS
     Indication: ASTROCYTOMA, LOW GRADE
     Dosage: 2.5 MG, QD
     Route: 048
     Dates: start: 20110311

REACTIONS (8)
  - Aggression [Unknown]
  - Pyrexia [Unknown]
  - Stomatitis [Recovering/Resolving]
  - Tonsillar hypertrophy [Unknown]
  - Astrocytoma, low grade [Unknown]
  - Abnormal behaviour [Unknown]
  - Anger [Unknown]
  - Nasopharyngitis [Unknown]

NARRATIVE: CASE EVENT DATE: 20190826
